FAERS Safety Report 10285795 (Version 3)
Quarter: 2014Q3

REPORT INFORMATION
  Report Type: Spontaneous
  Country: US (occurrence: None)
  Receive Date: 20140703
  Receipt Date: 20140811
  Transmission Date: 20150326
  Serious: Yes (Hospitalization)
  Sender: FDA-Public Use
  Company Number: UNT-2014-002991

PATIENT
  Age: 51 Year
  Sex: Female
  Weight: 91.2 kg

DRUGS (1)
  1. REMODULIN [Suspect]
     Active Substance: TREPROSTINIL
     Indication: PULMONARY ARTERIAL HYPERTENSION
     Route: 041
     Dates: start: 20130822

REACTIONS (6)
  - Device related infection [None]
  - Staphylococcal infection [None]
  - Malaise [None]
  - Drug dose omission [None]
  - Local swelling [None]
  - Device dislocation [None]

NARRATIVE: CASE EVENT DATE: 20140620
